FAERS Safety Report 19616845 (Version 1)
Quarter: 2021Q3

REPORT INFORMATION
  Report Type: Spontaneous
  Country: US (occurrence: US)
  Receive Date: 20210727
  Receipt Date: 20210727
  Transmission Date: 20211014
  Serious: Yes (Other)
  Sender: FDA-Public Use
  Company Number: US-ABBVIE-21K-163-3797292-00

PATIENT
  Age: 68 Year
  Sex: Female
  Weight: 72.19 kg

DRUGS (5)
  1. NP THYROID [Suspect]
     Active Substance: LEVOTHYROXINE\LIOTHYRONINE
     Dosage: ONE TABLET BY MOUTH DAILY
     Route: 048
  2. NP THYROID [Suspect]
     Active Substance: LEVOTHYROXINE\LIOTHYRONINE
     Dosage: ONE HALF  TABLET BY MOTH ONCE DAILY
     Route: 048
  3. LEVOTHYROXINE. [Suspect]
     Active Substance: LEVOTHYROXINE
     Indication: HYPOTHYROIDISM
     Route: 048
  4. NP THYROID [Suspect]
     Active Substance: LEVOTHYROXINE\LIOTHYRONINE
     Indication: HYPOTHYROIDISM
     Dosage: ONE HALF  TABLET BY MOTH ONCE DAILY
     Route: 048
  5. ARMOUR THYROID [Suspect]
     Active Substance: THYROID, PORCINE
     Indication: HYPOTHYROIDISM
     Route: 065

REACTIONS (3)
  - Intentional product misuse [Recovered/Resolved]
  - Insomnia [Unknown]
  - Palpitations [Recovered/Resolved]

NARRATIVE: CASE EVENT DATE: 201907
